FAERS Safety Report 11588447 (Version 1)
Quarter: 2015Q4

REPORT INFORMATION
  Report Type: Spontaneous
  Country: CA (occurrence: CA)
  Receive Date: 20151002
  Receipt Date: 20151002
  Transmission Date: 20160304
  Serious: Yes (Other)
  Sender: FDA-Public Use
  Company Number: CA-ELI_LILLY_AND_COMPANY-CA201509006832

PATIENT
  Sex: Male

DRUGS (2)
  1. CYMBALTA [Suspect]
     Active Substance: DULOXETINE HYDROCHLORIDE
     Indication: DEPRESSION
     Dosage: 60 MG, UNKNOWN
     Route: 065
  2. CYMBALTA [Suspect]
     Active Substance: DULOXETINE HYDROCHLORIDE
     Dosage: UNK, UNKNOWN
     Route: 065

REACTIONS (27)
  - Weight decreased [Recovered/Resolved]
  - Panic reaction [Recovered/Resolved]
  - Intentional product misuse [Recovered/Resolved]
  - Mood altered [Recovered/Resolved]
  - Fear [Recovered/Resolved]
  - Decreased appetite [Recovered/Resolved]
  - Headache [Recovered/Resolved]
  - Appetite disorder [Recovered/Resolved]
  - Anxiety [Recovered/Resolved]
  - Eye disorder [Recovered/Resolved]
  - Paraesthesia [Recovered/Resolved]
  - Mental disorder [Recovered/Resolved]
  - Libido decreased [Recovered/Resolved]
  - Palpitations [Recovered/Resolved]
  - Sleep disorder [Recovered/Resolved]
  - Feeling abnormal [Recovered/Resolved]
  - Wrong technique in product usage process [Recovered/Resolved]
  - Drug abuse [Recovered/Resolved]
  - Panic attack [Recovered/Resolved]
  - Drug withdrawal syndrome [Recovered/Resolved]
  - Affective disorder [Recovered/Resolved]
  - Abulia [Recovered/Resolved]
  - Hyperhidrosis [Recovered/Resolved]
  - Fatigue [Recovered/Resolved]
  - Muscle spasms [Recovered/Resolved]
  - Movement disorder [Recovered/Resolved]
  - Alcohol abuse [Recovered/Resolved]
